FAERS Safety Report 17061385 (Version 3)
Quarter: 2020Q3

REPORT INFORMATION
  Report Type: Report from Study
  Country: JP (occurrence: JP)
  Receive Date: 20191121
  Receipt Date: 20200708
  Transmission Date: 20201102
  Serious: Yes (Hospitalization)
  Sender: FDA-Public Use
  Company Number: JP-CELLTRION INC.-2019JP026554

PATIENT

DRUGS (20)
  1. INFLIXIMAB BS FOR I.V. INFUSION100 MG [NK] [Suspect]
     Active Substance: INFLIXIMAB
     Dosage: 260 MILLIGRAM, QD
     Route: 041
     Dates: start: 20160729, end: 20160729
  2. INFLIXIMAB BS FOR I.V. INFUSION100 MG [NK] [Suspect]
     Active Substance: INFLIXIMAB
     Indication: CROHN^S DISEASE
     Dosage: 250 MILLIGRAM, EVERY ADMINISTRATION DATE (QD)
     Route: 041
     Dates: start: 20160302, end: 20160302
  3. INFLIXIMAB BS FOR I.V. INFUSION100 MG [NK] [Suspect]
     Active Substance: INFLIXIMAB
     Dosage: 260 MILLIGRAM, QD
     Route: 041
     Dates: start: 20161202, end: 20161202
  4. INFLIXIMAB BS FOR I.V. INFUSION100 MG [NK] [Suspect]
     Active Substance: INFLIXIMAB
     Dosage: 260 MILLIGRAM, QD
     Route: 041
     Dates: start: 20170203, end: 20170203
  5. INFLIXIMAB BS FOR I.V. INFUSION100 MG [NK] [Suspect]
     Active Substance: INFLIXIMAB
     Dosage: 260 MILLIGRAM, QD
     Route: 041
     Dates: start: 20170414, end: 20170414
  6. INFLIXIMAB BS FOR I.V. INFUSION100 MG [NK] [Suspect]
     Active Substance: INFLIXIMAB
     Dosage: 250 MILLIGRAM, QD
     Route: 041
     Dates: start: 20171025, end: 20171025
  7. MESALAZINE [Concomitant]
     Active Substance: MESALAMINE
     Indication: CROHN^S DISEASE
     Dosage: UNK
     Dates: start: 20141015
  8. FERROUS SULFATE. [Concomitant]
     Active Substance: FERROUS SULFATE
     Indication: IRON DEFICIENCY ANAEMIA
     Dosage: UNK
     Dates: start: 20160302, end: 20160412
  9. INFLIXIMAB BS FOR I.V. INFUSION100 MG [NK] [Suspect]
     Active Substance: INFLIXIMAB
     Dosage: 250 MILLIGRAM, QD
     Route: 041
     Dates: start: 20160608, end: 20160608
  10. INFLIXIMAB BS FOR I.V. INFUSION100 MG [NK] [Suspect]
     Active Substance: INFLIXIMAB
     Dosage: 260 MILLIGRAM, QD
     Route: 041
     Dates: start: 20170623, end: 20170623
  11. INFLIXIMAB BS FOR I.V. INFUSION100 MG [NK] [Suspect]
     Active Substance: INFLIXIMAB
     Dosage: 260 MILLIGRAM, QD
     Route: 041
     Dates: start: 20170823, end: 20170823
  12. LAC?B [Concomitant]
     Active Substance: BIFIDOBACTERIUM SPP.
     Indication: GASTROINTESTINAL DISORDER
     Dosage: UNK
     Dates: start: 20130130
  13. INFLIXIMAB BS FOR I.V. INFUSION100 MG [NK] [Suspect]
     Active Substance: INFLIXIMAB
     Dosage: 240 MILLIGRAM, QD
     Route: 041
     Dates: start: 20160413, end: 20160413
  14. INFLIXIMAB BS FOR I.V. INFUSION100 MG [NK] [Suspect]
     Active Substance: INFLIXIMAB
     Dosage: 260 MILLIGRAM, QD
     Route: 041
     Dates: start: 20160930, end: 20160930
  15. INFLIXIMAB BS FOR I.V. INFUSION100 MG [NK] [Suspect]
     Active Substance: INFLIXIMAB
     Dosage: 250 MILLIGRAM, QD
     Route: 041
     Dates: start: 20171227, end: 20171227
  16. INFLIXIMAB BS FOR I.V. INFUSION100 MG [NK] [Suspect]
     Active Substance: INFLIXIMAB
     Dosage: 250 MILLIGRAM, QD
     Route: 041
     Dates: start: 20180228, end: 20180228
  17. INFLIXIMAB BS FOR I.V. INFUSION100 MG [NK] [Suspect]
     Active Substance: INFLIXIMAB
     Dosage: 240 MILLIGRAM, QD
     Route: 041
     Dates: start: 20180502, end: 20180502
  18. RACOL [PARACETAMOL;TRAMADOL HYDROCHLORIDE] [Concomitant]
     Indication: CROHN^S DISEASE
     Dosage: UNK
     Dates: start: 20130130
  19. INFLIXIMAB BS FOR I.V. INFUSION100 MG [NK] [Suspect]
     Active Substance: INFLIXIMAB
     Dosage: 240 MILLIGRAM, QD
     Route: 041
     Dates: start: 20160314, end: 20160314
  20. FERROUS CITRATE NA [Concomitant]
     Active Substance: SODIUM FERROUS CITRATE
     Indication: IRON DEFICIENCY ANAEMIA
     Dosage: UNK
     Dates: start: 20161202, end: 20170202

REACTIONS (3)
  - Uterine polyp [Recovered/Resolved]
  - Iron deficiency anaemia [Recovered/Resolved]
  - Product use issue [Unknown]

NARRATIVE: CASE EVENT DATE: 20170623
